FAERS Safety Report 21577729 (Version 1)
Quarter: 2022Q4

REPORT INFORMATION
  Report Type: Spontaneous
  Country: US (occurrence: None)
  Receive Date: 20221109
  Receipt Date: 20221109
  Transmission Date: 20230112
  Serious: Yes (Hospitalization)
  Sender: FDA-Public Use
  Company Number: None

PATIENT
  Age: 64 Year
  Sex: Female

DRUGS (4)
  1. VELTASSA [Suspect]
     Active Substance: PATIROMER
     Indication: Product used for unknown indication
     Dosage: FREQUENCY : DAILY;?
     Route: 048
     Dates: start: 20210407
  2. BUMETANIDE [Concomitant]
     Active Substance: BUMETANIDE
  3. CALCITRIOL [Concomitant]
     Active Substance: CALCITRIOL
  4. CALCIUM ACETATE [Concomitant]
     Active Substance: CALCIUM ACETATE

REACTIONS (3)
  - Blood potassium increased [None]
  - Blood potassium decreased [None]
  - Peripheral swelling [None]
